FAERS Safety Report 6467557-0 (Version None)
Quarter: 2009Q4

REPORT INFORMATION
  Report Type: 
  Country: None (occurrence: None)
  Receive Date: 20091202
  Receipt Date: 20091119
  Transmission Date: 20100525
  Serious: Yes (Hospitalization, Other)
  Sender: FDA-Public Use
  Company Number: ES-ELI_LILLY_AND_COMPANY-ES200911005212

PATIENT
  Age: 68 Year
  Sex: Female

DRUGS (2)
  1. FORTEO [Suspect]
     Indication: OSTEOPOROSIS
     Dosage: 20 UG, UNKNOWN
     Route: 058
     Dates: start: 20090201, end: 20091117
  2. ANTIHYPERTENSIVES [Concomitant]
     Indication: HYPERTENSION

REACTIONS (4)
  - BLOOD GLUCOSE INCREASED [None]
  - INFARCTION [None]
  - LOWER RESPIRATORY TRACT INFLAMMATION [None]
  - LUNG INFECTION [None]
